FAERS Safety Report 5369135-3 (Version None)
Quarter: 2007Q2

REPORT INFORMATION
  Report Type: 
  Country: None (occurrence: None)
  Receive Date: 20070625
  Receipt Date: 20070214
  Transmission Date: 20071010
  Serious: No
  Sender: FDA-Public Use
  Company Number: US-ASTRAZENECA-2007UW02985

PATIENT
  Age: 74 Year
  Sex: Female
  Weight: 112.9 kg

DRUGS (5)
  1. CRESTOR [Suspect]
     Indication: BLOOD CHOLESTEROL INCREASED
     Route: 048
  2. POTASSIUM ACETATE [Concomitant]
  3. FOLIC ACID [Concomitant]
  4. ALLERGY MEDICATION OTC [Concomitant]
  5. AVALIDE [Concomitant]

REACTIONS (1)
  - ALOPECIA [None]
